FAERS Safety Report 10270569 (Version 2)
Quarter: 2014Q3

REPORT INFORMATION
  Report Type: Spontaneous
  Country: US (occurrence: US)
  Receive Date: 20140701
  Receipt Date: 20140711
  Transmission Date: 20150326
  Serious: Yes (Hospitalization)
  Sender: FDA-Public Use
  Company Number: US-BAXTER-2014BAX031110

PATIENT
  Sex: Female

DRUGS (1)
  1. DIANEAL LOW CALCIUM PERITONEAL DIALYSIS SOLUTION WITH DEXTROSE [Suspect]
     Active Substance: CALCIUM CHLORIDE\DEXTROSE\MAGNESIUM CHLORIDE\SODIUM CHLORIDE\SODIUM LACTATE
     Indication: PERITONEAL DIALYSIS
     Dosage: 2 BAGS
     Route: 033

REACTIONS (5)
  - Hepatic infection [Unknown]
  - Asthenia [Unknown]
  - Head injury [Unknown]
  - Amyloidosis [Unknown]
  - Fall [Unknown]
